FAERS Safety Report 11945404 (Version 2)
Quarter: 2016Q1

REPORT INFORMATION
  Report Type: Other
  Country: None (occurrence: RU)
  Receive Date: 20160125
  Receipt Date: 20160205
  Transmission Date: 20160526
  Serious: Yes (Other)
  Sender: FDA-Public Use
  Company Number: RU-MERCK KGAA-1046875

PATIENT

DRUGS (1)
  1. NOVOTHYROX [Suspect]
     Active Substance: LEVOTHYROXINE SODIUM

REACTIONS (3)
  - Persistent depressive disorder [None]
  - Pyoderma streptococcal [None]
  - Photosensitivity reaction [None]
